FAERS Safety Report 8938158 (Version 9)
Quarter: 2013Q2

REPORT INFORMATION
  Report Type: Spontaneous
  Country: FR (occurrence: FR)
  Receive Date: 20121130
  Receipt Date: 20130604
  Transmission Date: 20140414
  Serious: Yes (Death, Hospitalization, Other)
  Sender: FDA-Public Use
  Company Number: FR-TEVA-373380USA

PATIENT
  Age: 50 Year
  Sex: Male

DRUGS (20)
  1. LEVACT [Suspect]
     Indication: PLASMA CELL MYELOMA
     Dosage: CYCLICAL
     Route: 042
     Dates: start: 20120919, end: 20121022
  2. LEVACT [Suspect]
     Route: 042
     Dates: start: 20120425
  3. OXYCONTIN [Suspect]
     Route: 048
  4. HALDOL [Suspect]
     Dosage: REGIMEN#1 (1MG) UID/QD
     Route: 048
  5. INEXIUM [Suspect]
     Dosage: REGIMEN#1 UID/QD
     Route: 048
  6. BACTRIM [Suspect]
     Dosage: REGIMEN #1 1DF
     Route: 048
  7. BACLOFEN [Suspect]
     Dosage: REGIMEN #1 2DF
     Route: 048
  8. COLTRAMYL [Suspect]
     Dosage: 12 MILLIGRAM DAILY; REGIMEN #1 UNK/D
     Route: 048
  9. LASILIX [Suspect]
     Dosage: REGIMEN#1 UID/QD
     Route: 048
  10. LYRICA [Suspect]
     Dosage: REGIMEN #1 UID/QD
     Route: 048
  11. TOPALGIC [Suspect]
     Dosage: 200 MILLIGRAM DAILY; REGIMEN #1 2DF UID/QD
     Route: 048
  12. DAFALGAN [Suspect]
     Dosage: REGIMEN #1 UNK/D
     Route: 048
  13. ZOPICLONE [Suspect]
     Dosage: REGIMEN#1. UNK
     Route: 048
  14. LAROXYL [Suspect]
     Indication: NEURALGIA
     Dosage: REGIMEN#1
     Route: 048
  15. TEMESTA [Suspect]
     Dosage: REGIMEN#1 1DF, UID/QD
  16. CIPROFLOXACIN [Concomitant]
     Indication: PYELONEPHRITIS
     Dates: start: 20120821, end: 20120830
  17. GENTALLINE [Concomitant]
     Indication: PYELONEPHRITIS
     Dates: start: 20120821, end: 20120830
  18. PIPERACILLINE [Concomitant]
     Indication: PYELONEPHRITIS
     Dates: start: 20120821, end: 20120830
  19. TAZOCILLINE [Concomitant]
     Indication: PYELONEPHRITIS
     Dates: start: 20120821, end: 20120830
  20. VANCOMYCINE [Concomitant]
     Indication: PYELONEPHRITIS
     Dates: start: 20120821, end: 20120830

REACTIONS (9)
  - Jaundice cholestatic [Fatal]
  - Plasma cell myeloma [Fatal]
  - Staphylococcal sepsis [Fatal]
  - Spinal cord injury [Fatal]
  - Plasmacytoma [Fatal]
  - Blood disorder [Fatal]
  - Kidney infection [Unknown]
  - Anaemia [Unknown]
  - Femoral neck fracture [Not Recovered/Not Resolved]
